FAERS Safety Report 16163745 (Version 1)
Quarter: 2019Q2

REPORT INFORMATION
  Report Type: Report from Study
  Country: GB (occurrence: GB)
  Receive Date: 20190405
  Receipt Date: 20190405
  Transmission Date: 20190711
  Serious: Yes (Life-Threatening, Hospitalization, Other)
  Sender: FDA-Public Use
  Company Number: GB-PFIZER INC-A108795

PATIENT
  Age: 77 Year
  Sex: Male
  Weight: 50.7 kg

DRUGS (36)
  1. PREDNISOLONE. [Concomitant]
     Active Substance: PREDNISOLONE
     Indication: CHRONIC OBSTRUCTIVE PULMONARY DISEASE
     Dosage: UNK
     Route: 048
     Dates: start: 20001212, end: 20001227
  2. ZOPICLONE [Concomitant]
     Active Substance: ZOPICLONE
     Dosage: UNK
     Route: 048
     Dates: start: 20010416, end: 20010417
  3. PREDNISOLONE. [Concomitant]
     Active Substance: PREDNISOLONE
     Dosage: UNK
     Route: 048
     Dates: start: 20001228, end: 20010110
  4. CIPROFLOXACIN HCL [Concomitant]
     Active Substance: CIPROFLOXACIN HYDROCHLORIDE
     Dosage: UNK
     Route: 048
     Dates: start: 20010411
  5. FLUOXETINE [Concomitant]
     Active Substance: FLUOXETINE HYDROCHLORIDE
     Dosage: UNK
     Route: 048
     Dates: start: 20010323
  6. HEXACHLOROPHENE [Concomitant]
     Active Substance: HEXACHLOROPHENE
     Dosage: UNK
     Route: 061
     Dates: start: 20010323
  7. CEFTAZIDIME. [Concomitant]
     Active Substance: CEFTAZIDIME
     Dosage: UNK
     Route: 042
     Dates: start: 20001212, end: 20001222
  8. MEROPENEM. [Concomitant]
     Active Substance: MEROPENEM
     Dosage: UNK
     Route: 042
     Dates: start: 20010130, end: 20010219
  9. ETIDRONATE [Concomitant]
     Active Substance: ETIDRONATE DISODIUM
     Dosage: UNK
     Route: 048
     Dates: start: 20010308
  10. AMILORIDE [Concomitant]
     Active Substance: AMILORIDE
     Indication: DIURETIC THERAPY
     Dosage: UNK
     Route: 048
     Dates: start: 20010405, end: 20010417
  11. VORICONAZOLE. [Suspect]
     Active Substance: VORICONAZOLE
     Indication: FUNGAL INFECTION
     Dosage: 160 MG (6MG/KG), Q12H
     Route: 042
     Dates: start: 20010405, end: 20010405
  12. VORICONAZOLE. [Suspect]
     Active Substance: VORICONAZOLE
     Indication: PULMONARY MYCOSIS
  13. FRUSEMIDE [FUROSEMIDE] [Concomitant]
     Active Substance: FUROSEMIDE
     Dosage: UNK
     Route: 048
     Dates: start: 20010301, end: 20010417
  14. PREDNISOLONE. [Concomitant]
     Active Substance: PREDNISOLONE
     Dosage: UNK
     Route: 048
     Dates: start: 20010315, end: 20010319
  15. PREDNISOLONE. [Concomitant]
     Active Substance: PREDNISOLONE
     Dosage: UNK
     Route: 048
     Dates: start: 20010320, end: 20010327
  16. HEPARIN SODIUM. [Concomitant]
     Active Substance: HEPARIN SODIUM
     Dosage: UNK
     Route: 058
     Dates: end: 20010417
  17. VORICONAZOLE. [Suspect]
     Active Substance: VORICONAZOLE
     Indication: PULMONARY MYCOSIS
     Dosage: 100 MG, 3 MG/KG, 2X/DAY
     Route: 042
     Dates: start: 20010406, end: 20010411
  18. PREDNISOLONE. [Concomitant]
     Active Substance: PREDNISOLONE
     Dosage: UNK
     Route: 048
     Dates: start: 20010111, end: 20010307
  19. GENTAMICIN. [Concomitant]
     Active Substance: GENTAMICIN
     Dosage: UNK
     Route: 042
     Dates: start: 20001230, end: 20010217
  20. MUPIROCIN. [Concomitant]
     Active Substance: MUPIROCIN
     Dosage: UNK
     Route: 045
     Dates: start: 20010323
  21. CHLORHEXIDINE GLUCONATE. [Concomitant]
     Active Substance: CHLORHEXIDINE GLUCONATE
     Dosage: UNK
     Route: 061
     Dates: start: 20010323
  22. VORICONAZOLE. [Suspect]
     Active Substance: VORICONAZOLE
     Indication: FUNGAL INFECTION
     Dosage: 100 MG, 2X/DAY
     Route: 048
     Dates: start: 20010412, end: 20010417
  23. FRUSEMIDE [FUROSEMIDE] [Concomitant]
     Active Substance: FUROSEMIDE
     Indication: OEDEMA PERIPHERAL
     Dosage: 20 MG, UNK
     Route: 048
     Dates: start: 20001212, end: 20010225
  24. PREDNISOLONE. [Concomitant]
     Active Substance: PREDNISOLONE
     Dosage: UNK
     Route: 048
     Dates: start: 20010308, end: 20010314
  25. METRONIDAZOLE. [Concomitant]
     Active Substance: METRONIDAZOLE
     Dosage: UNK
     Route: 048
     Dates: start: 20001227, end: 20010109
  26. TEICOPLANIN [Concomitant]
     Active Substance: TEICOPLANIN
     Dosage: UNK
     Route: 042
     Dates: start: 20010321, end: 20010410
  27. ENOXAPARIN SODIUM. [Concomitant]
     Active Substance: ENOXAPARIN SODIUM
     Indication: THROMBOSIS PROPHYLAXIS
     Dosage: UNK
     Dates: end: 20010417
  28. SALMETEROL XINAFOATE [Concomitant]
     Active Substance: SALMETEROL XINAFOATE
     Dosage: UNK
     Route: 055
  29. ITRACONAZOLE. [Concomitant]
     Active Substance: ITRACONAZOLE
     Dosage: UNK
     Route: 042
     Dates: start: 20010303, end: 20010404
  30. PROCHLORPERAZINE. [Concomitant]
     Active Substance: PROCHLORPERAZINE
     Route: 048
     Dates: start: 20010411
  31. ITRACONAZOLE. [Suspect]
     Active Substance: ITRACONAZOLE
     Indication: PULMONARY MYCOSIS
     Dosage: UNK
  32. BECLOMETHASONE [Concomitant]
     Active Substance: BECLOMETHASONE
     Dosage: 250 UG
     Route: 055
  33. CIPROFLOXACIN HCL [Concomitant]
     Active Substance: CIPROFLOXACIN HYDROCHLORIDE
     Dosage: UNK
     Dates: start: 20010113, end: 20010219
  34. ITRACONAZOLE. [Concomitant]
     Active Substance: ITRACONAZOLE
     Indication: PULMONARY MYCOSIS
     Dosage: UNK
     Route: 042
     Dates: start: 20010228, end: 20010303
  35. ZINC SULFATE [Concomitant]
     Active Substance: ZINC SULFATE\ZINC SULFATE ANHYDROUS
     Route: 048
     Dates: start: 20010406
  36. ZOLPIDEM [Concomitant]
     Active Substance: ZOLPIDEM\ZOLPIDEM TARTRATE
     Dosage: UNK, HS
     Route: 065

REACTIONS (14)
  - Adrenal insufficiency [Recovered/Resolved]
  - General physical health deterioration [Recovered/Resolved]
  - Coma scale abnormal [Recovered/Resolved]
  - Mental status changes [Recovered/Resolved]
  - Cortisol increased [Recovered/Resolved]
  - Hyperkalaemia [Recovered/Resolved]
  - Drug ineffective [Unknown]
  - Hypoglycaemia [Recovered/Resolved]
  - Drug level increased [Recovered/Resolved]
  - Hypotension [Recovered/Resolved]
  - Hyponatraemia [Recovered/Resolved]
  - Electrolyte imbalance [Recovered/Resolved]
  - Bundle branch block right [Recovered/Resolved]
  - Unresponsive to stimuli [Recovered/Resolved]

NARRATIVE: CASE EVENT DATE: 200104
